FAERS Safety Report 7290041-1 (Version None)
Quarter: 2011Q1

REPORT INFORMATION
  Report Type: 
  Country: None (occurrence: None)
  Receive Date: 20110214
  Receipt Date: 20100630
  Transmission Date: 20110831
  Serious: Yes (Hospitalization)
  Sender: FDA-Public Use
  Company Number: IE-NAPPMUNDI-GBR-2009-0005400

PATIENT
  Sex: Female

DRUGS (17)
  1. MORPHINE SULFATE [Suspect]
     Dosage: 10 MG, DAILY
     Route: 065
  2. INNOHEP [Concomitant]
     Indication: THROMBOSIS PROPHYLAXIS
     Dosage: 14000 IU, DAILY
     Route: 065
     Dates: start: 20080427
  3. VALOID                             /00014903/ [Concomitant]
     Indication: MALAISE
     Dosage: 50 MG, TID
     Route: 065
  4. CIPRAMIL                           /00582602/ [Concomitant]
     Indication: DEPRESSION
     Dosage: 20 MG, NOCTE
     Route: 065
  5. ZOTON [Concomitant]
     Indication: PROPHYLAXIS
     Dosage: 30 MG, DAILY
     Route: 065
  6. CAPECITABINE [Suspect]
     Indication: BREAST CANCER
     Dosage: UNK
     Route: 048
     Dates: start: 20081013
  7. HEPSAL [Concomitant]
     Dosage: 5 ML, PRN
     Route: 065
     Dates: start: 20090427
  8. ORAMORPH SR [Suspect]
     Indication: ANALGESIC THERAPY
     Dosage: 5 MG, PRN
     Route: 065
  9. MOTILIUM [Concomitant]
     Indication: MALAISE
     Dosage: 10 MG, PRN
     Route: 065
  10. DEXAMETHASONE [Concomitant]
     Indication: STEROID THERAPY
     Dosage: 8 MG, BID
     Route: 065
     Dates: start: 20090427
  11. HALOPERIDOL [Concomitant]
     Indication: MALAISE
     Dosage: 1.5 MG, DAILY
     Route: 065
  12. MILPAR                             /00259101/ [Concomitant]
     Indication: LAXATIVE SUPPORTIVE CARE
     Dosage: 15 ML, BID
     Route: 065
  13. PREGABALIN [Suspect]
     Indication: ANALGESIC THERAPY
     Dosage: 25 MG, BID
     Route: 065
  14. DIOCTYL [Concomitant]
     Indication: LAXATIVE SUPPORTIVE CARE
     Dosage: 100 MG, BID
     Route: 065
  15. ZIMOVANE [Concomitant]
     Indication: INSOMNIA
     Dosage: 7.5 MG, NOCTE
     Route: 065
  16. MORPHINE SULFATE [Suspect]
     Indication: ANALGESIC THERAPY
     Dosage: 25 MG, DAILY
     Route: 065
  17. DUPHALAC [Concomitant]
     Indication: LAXATIVE SUPPORTIVE CARE
     Dosage: 15 ML, BID
     Route: 065

REACTIONS (2)
  - FATIGUE [None]
  - PAIN [None]
